FAERS Safety Report 4564231-2 (Version None)
Quarter: 2005Q1

REPORT INFORMATION
  Report Type: 
  Country: None (occurrence: None)
  Receive Date: 20050128
  Receipt Date: 20050121
  Transmission Date: 20050727
  Serious: Yes (Other)
  Sender: FDA-Public Use
  Company Number: JP-ROCHE-393414

PATIENT

DRUGS (1)
  1. PEGASYS [Suspect]
     Route: 058

REACTIONS (1)
  - CEREBRAL INFARCTION [None]
